FAERS Safety Report 8857548 (Version 4)
Quarter: 2013Q4

REPORT INFORMATION
  Report Type: Report from Study
  Country: IT (occurrence: IT)
  Receive Date: 20121024
  Receipt Date: 20131024
  Transmission Date: 20140711
  Serious: Yes (Death, Life-Threatening, Hospitalization, Disabling, Other)
  Sender: FDA-Public Use
  Company Number: IT-VIIV HEALTHCARE LIMITED-B0839577A

PATIENT
  Age: 53 Year
  Sex: Male
  Weight: 50 kg

DRUGS (15)
  1. MARAVIROC [Suspect]
     Indication: HIV INFECTION
     Dosage: 150MG TWICE PER DAY
     Route: 048
     Dates: start: 20120516
  2. DARUNAVIR [Concomitant]
     Indication: HIV INFECTION
     Dosage: 800MG PER DAY
     Dates: start: 20120516
  3. RITONAVIR [Concomitant]
     Indication: HIV INFECTION
     Dosage: 100MG PER DAY
     Dates: start: 20120516
  4. TRUVADA [Concomitant]
     Indication: HIV INFECTION
     Dosage: 1TAB PER DAY
     Dates: start: 20120516
  5. LORAZEPAM [Concomitant]
     Dosage: 2.5MG PER DAY
     Dates: start: 20120625
  6. ZOLOFT [Concomitant]
     Dosage: 50MG PER DAY
     Dates: start: 20120625
  7. METHADONE [Concomitant]
     Dosage: 55MG PER DAY
     Dates: start: 20120625
  8. NITROCOR [Concomitant]
     Dosage: 10MG PER DAY
     Dates: start: 20120625
  9. DIFLUCAN [Concomitant]
     Dates: start: 20120625
  10. DIFLUCAN [Concomitant]
     Dosage: 100MG PER DAY
     Dates: start: 20120625
  11. CARDIOASPIRIN [Concomitant]
     Dosage: 100MG PER DAY
     Dates: start: 20120625
  12. BACTRIM [Concomitant]
     Dosage: 1CAP PER DAY
     Dates: start: 20120625
  13. PORTOLAC [Concomitant]
     Dates: start: 20120625
  14. VALIUM [Concomitant]
     Dates: start: 20120625
  15. PANTORC [Concomitant]
     Dosage: 20MG PER DAY
     Dates: start: 20120625

REACTIONS (1)
  - Renal cancer [Fatal]
